FAERS Safety Report 21756318 (Version 1)
Quarter: 2022Q4

REPORT INFORMATION
  Report Type: Spontaneous
  Country: US (occurrence: US)
  Receive Date: 20221220
  Receipt Date: 20221220
  Transmission Date: 20230113
  Serious: Yes (Death)
  Sender: FDA-Public Use
  Company Number: US-KARYOPHARM-2022KPT001588

PATIENT

DRUGS (11)
  1. XPOVIO [Suspect]
     Active Substance: SELINEXOR
     Indication: Brain neoplasm malignant
     Dosage: 80 MG, 2X/WEEK
     Route: 048
     Dates: start: 202210, end: 202212
  2. ATOVAQUONE [Concomitant]
     Active Substance: ATOVAQUONE
  3. AVASTIN [Concomitant]
     Active Substance: BEVACIZUMAB
  4. EPINEPHRINE [Concomitant]
     Active Substance: EPINEPHRINE
  5. LEUKINE [Concomitant]
     Active Substance: SARGRAMOSTIM
  6. LEVETIRACETAM [Concomitant]
     Active Substance: LEVETIRACETAM
  7. METFORMIN [Concomitant]
     Active Substance: METFORMIN HYDROCHLORIDE
  8. ZOFRAN [Concomitant]
     Active Substance: ONDANSETRON HYDROCHLORIDE
  9. TAMOXIFEN [Concomitant]
     Active Substance: TAMOXIFEN
  10. DEXAMETHASONE [Concomitant]
     Active Substance: DEXAMETHASONE
  11. TAGRISSO [Concomitant]
     Active Substance: OSIMERTINIB

REACTIONS (1)
  - Death [Fatal]

NARRATIVE: CASE EVENT DATE: 20221207
